FAERS Safety Report 20430292 (Version 1)
Quarter: 2022Q1

REPORT INFORMATION
  Report Type: Report from Study
  Country: FR (occurrence: FR)
  Receive Date: 20220204
  Receipt Date: 20220204
  Transmission Date: 20220424
  Serious: Yes (Hospitalization)
  Sender: FDA-Public Use
  Company Number: FR-SERVIER-S20005822

PATIENT

DRUGS (8)
  1. PEGASPARGASE [Suspect]
     Active Substance: PEGASPARGASE
     Indication: Acute lymphocytic leukaemia
     Dosage: 2700 IU  D15, D43
     Dates: start: 20200323
  2. TN UNSPECIFIED [Concomitant]
     Indication: Acute lymphocytic leukaemia
     Dosage: 1080 MG ON D1, D29
     Route: 042
     Dates: start: 20200309, end: 20200406
  3. TN UNSPECIFIED [Concomitant]
     Indication: Acute lymphocytic leukaemia
     Dosage: 15 MG ON D3, D31
     Route: 037
     Dates: start: 20200311
  4. TN UNSPECIFIED [Concomitant]
     Indication: Acute lymphocytic leukaemia
     Dosage: 30 MG ON D3, D31
     Route: 037
     Dates: start: 20200311
  5. TN UNSPECIFIED [Concomitant]
     Dosage: 81 MG QD FROM D3 TO D6, FROM D10 TO D13, FROM D31 TO D34, ON D38
     Route: 042
     Dates: start: 20200311
  6. TN UNSPECIFIED [Concomitant]
     Indication: Acute lymphocytic leukaemia
     Dosage: 15 MG ON D3, D31
     Route: 037
     Dates: start: 20200311
  7. TN UNSPECIFIED [Concomitant]
     Indication: Acute lymphocytic leukaemia
     Dosage: 1,6 MG ON D15, D22, D43, D50
     Route: 042
     Dates: start: 20200323
  8. TN UNSPECIFIED [Concomitant]
     Indication: Acute lymphocytic leukaemia
     Dosage: 100 MG QD FROM D1 TO D14 AND FROM D29 TO D42
     Route: 048
     Dates: start: 20200309

REACTIONS (1)
  - Staphylococcal sepsis [Recovered/Resolved]

NARRATIVE: CASE EVENT DATE: 20200415
